FAERS Safety Report 9158058 (Version 2)
Quarter: 2014Q2

REPORT INFORMATION
  Report Type: Spontaneous
  Country: US (occurrence: US)
  Receive Date: 20130312
  Receipt Date: 20140627
  Transmission Date: 20141212
  Serious: Yes (Other)
  Sender: FDA-Public Use
  Company Number: US-BAYER-2013-030720

PATIENT
  Age: 21 Year
  Sex: Female

DRUGS (1)
  1. MIRENA [Suspect]
     Indication: CONTRACEPTION
     Dosage: 20 MCG/24HR, CONT
     Route: 015
     Dates: end: 20130304

REACTIONS (7)
  - Device dislocation [None]
  - Acute pulmonary oedema [None]
  - Respiratory failure [None]
  - Foetal heart rate abnormal [None]
  - Device difficult to use [Recovered/Resolved]
  - Pregnancy with contraceptive device [Recovered/Resolved]
  - Drug ineffective [None]
